FAERS Safety Report 8914943 (Version 2)
Quarter: 2013Q1

REPORT INFORMATION
  Report Type: Spontaneous
  Country: IT (occurrence: IT)
  Receive Date: 20121116
  Receipt Date: 20130104
  Transmission Date: 20140127
  Serious: Yes (Hospitalization)
  Sender: FDA-Public Use
  Company Number: IT-BRISTOL-MYERS SQUIBB COMPANY-17111196

PATIENT
  Age: 66 Year
  Sex: Male

DRUGS (1)
  1. COUMADIN TABS 5 MG [Suspect]
     Indication: ATRIAL FIBRILLATION
     Route: 048
     Dates: start: 20110624, end: 20121105

REACTIONS (2)
  - Arterial thrombosis [Recovered/Resolved]
  - Cerebrovascular accident [Unknown]
